FAERS Safety Report 7227351-X (Version None)
Quarter: 2011Q1

REPORT INFORMATION
  Report Type: 
  Country: None (occurrence: None)
  Receive Date: 20110114
  Receipt Date: 20100726
  Transmission Date: 20110831
  Serious: Yes (Death)
  Sender: FDA-Public Use
  Company Number: PHHY2010US86700

PATIENT
  Age: 67 Year
  Sex: Female

DRUGS (1)
  1. TOBI [Suspect]
     Indication: CYSTIC FIBROSIS
     Dosage: 150 MG, BID WITH 28 DAYS ON AND 28 DAYS OFF THERAPY
     Dates: start: 20091008, end: 20100621

REACTIONS (1)
  - DEATH [None]
